FAERS Safety Report 15094974 (Version 4)
Quarter: 2018Q4

REPORT INFORMATION
  Report Type: Report from Study
  Country: None (occurrence: US)
  Receive Date: 20180701
  Receipt Date: 20181023
  Transmission Date: 20190204
  Serious: Yes (Other)
  Sender: FDA-Public Use
  Company Number: US-ABBVIE-16K-163-1653135-00

PATIENT
  Age: 60 Year
  Sex: Male

DRUGS (11)
  1. IMODIUM AD [Concomitant]
     Active Substance: LOPERAMIDE HYDROCHLORIDE
     Indication: DIARRHOEA
  2. LANSOPRAZOLE. [Concomitant]
     Active Substance: LANSOPRAZOLE
     Indication: OESOPHAGEAL DISORDER
  3. VITAMIN D3 [Concomitant]
     Active Substance: CHOLECALCIFEROL
     Indication: VITAMIN SUPPLEMENTATION
  4. HUMIRA [Suspect]
     Active Substance: ADALIMUMAB
     Indication: CROHN^S DISEASE
     Route: 058
     Dates: start: 20160516, end: 2018
  5. CITALOPRAM [Concomitant]
     Active Substance: CITALOPRAM HYDROBROMIDE
     Indication: DEPRESSION
  6. ALKA-SELTZER [Concomitant]
     Active Substance: ANHYDROUS CITRIC ACID\ASPIRIN\SODIUM BICARBONATE
     Indication: CROHN^S DISEASE
  7. VITAMIN C [Concomitant]
     Active Substance: ASCORBIC ACID
     Indication: VITAMIN SUPPLEMENTATION
  8. HUMIRA [Suspect]
     Active Substance: ADALIMUMAB
     Route: 058
     Dates: start: 2018
  9. KLOR-CON [Concomitant]
     Active Substance: POTASSIUM CHLORIDE
     Indication: MINERAL SUPPLEMENTATION
  10. PEPTO-BISMOL [Concomitant]
     Active Substance: BISMUTH SUBSALICYLATE
     Indication: DIARRHOEA
  11. FISH OIL [Concomitant]
     Active Substance: FISH OIL
     Indication: VITAMIN SUPPLEMENTATION

REACTIONS (21)
  - Headache [Recovering/Resolving]
  - Myalgia [Recovered/Resolved]
  - Balance disorder [Recovering/Resolving]
  - Arthralgia [Recovering/Resolving]
  - Abdominal adhesions [Not Recovered/Not Resolved]
  - Anal stenosis [Not Recovered/Not Resolved]
  - Haematochezia [Recovering/Resolving]
  - Pain [Unknown]
  - Pain [Unknown]
  - Muscular weakness [Recovering/Resolving]
  - Nausea [Unknown]
  - Fatigue [Recovered/Resolved]
  - Nausea [Recovered/Resolved]
  - Drug effect delayed [Recovered/Resolved]
  - Obstruction gastric [Unknown]
  - Contusion [Recovering/Resolving]
  - Therapeutic response shortened [Unknown]
  - Fatigue [Recovering/Resolving]
  - Myalgia [Unknown]
  - Hypophagia [Not Recovered/Not Resolved]
  - Dizziness [Recovering/Resolving]

NARRATIVE: CASE EVENT DATE: 2016
